FAERS Safety Report 8266898-4 (Version None)
Quarter: 2012Q2

REPORT INFORMATION
  Report Type: 
  Country: None (occurrence: None)
  Receive Date: 20120404
  Receipt Date: 20120404
  Transmission Date: 20120825
  Serious: No
  Sender: FDA-Public Use
  Company Number: None

PATIENT
  Age: 57 Year
  Sex: Female
  Weight: 58.514 kg

DRUGS (1)
  1. AZELASTINE [Suspect]
     Indication: MULTIPLE ALLERGIES
     Dosage: 137 MCG/SPRAY TWICE DAILY
     Route: 045
     Dates: start: 20120201, end: 20120310

REACTIONS (3)
  - OROPHARYNGEAL PAIN [None]
  - HEADACHE [None]
  - EPISTAXIS [None]
